FAERS Safety Report 5191104-7 (Version None)
Quarter: 2006Q4

REPORT INFORMATION
  Report Type: 
  Country: None (occurrence: None)
  Receive Date: 20061226
  Receipt Date: 20061214
  Transmission Date: 20070319
  Serious: Yes (Other)
  Sender: FDA-Public Use
  Company Number: PHEH2006US15249

PATIENT
  Age: 70 Year
  Sex: Female

DRUGS (1)
  1. LOTREL [Suspect]
     Indication: HYPERTENSION
     Dosage: 5/20 MG, QD
     Route: 048
     Dates: start: 20020101, end: 20061211

REACTIONS (4)
  - DYSARTHRIA [None]
  - FACIAL PALSY [None]
  - PAIN IN JAW [None]
  - SWOLLEN TONGUE [None]
